FAERS Safety Report 17334038 (Version 2)
Quarter: 2020Q1

REPORT INFORMATION
  Report Type: Spontaneous
  Country: DE (occurrence: DE)
  Receive Date: 20200128
  Receipt Date: 20200204
  Transmission Date: 20200409
  Serious: Yes (Other)
  Sender: FDA-Public Use
  Company Number: DE-ASCEND THERAPEUTICS US, LLC-2079501

PATIENT
  Age: 69 Year
  Sex: Female

DRUGS (5)
  1. UTROGEST (PROGESTERONE) (100 MILLIGRAM, CAPSULE, SOFT), UNKNOWN?INDICA [Suspect]
     Active Substance: PROGESTERONE
     Route: 048
  2. UTROGEST (PROGESTERONE) (100 MILLIGRAM, CAPSULE, SOFT), UNKNOWN?INDICA [Suspect]
     Active Substance: PROGESTERONE
     Route: 067
  3. GYNOKADIN DOSIERGEL (ESTRADIOL HEMIHYDRATE) (GEL) UNKNOWN [Suspect]
     Active Substance: ESTRADIOL HEMIHYDRATE
  4. BISOPROLOL (BISOPROLOL) UNKNOWN?INDICATION FOR USE:  BLOOD PRESSURE IN [Concomitant]
  5. ESTROGEL [Suspect]
     Active Substance: ESTRADIOL
     Indication: PRODUCT USED FOR UNKNOWN INDICATION

REACTIONS (4)
  - Incorrect dosage administered [Unknown]
  - Atrial fibrillation [Recovered/Resolved]
  - Panic attack [Recovered/Resolved]
  - Incorrect route of product administration [Unknown]

NARRATIVE: CASE EVENT DATE: 201903
